FAERS Safety Report 6958681 (Version 3)
Quarter: 2012Q4

REPORT INFORMATION
  Report Type: Report from Study
  Country: DK (occurrence: DK)
  Receive Date: 20090402
  Receipt Date: 20120911
  Transmission Date: 20130627
  Serious: Yes (Death, Life-Threatening, Disabling)
  Sender: FDA-Public Use
  Company Number: DK-ELI_LILLY_AND_COMPANY-DK200903006833

PATIENT
  Age: 77 Year
  Sex: Female
  Weight: 46.6 kg

DRUGS (5)
  1. TERIPARATIDE [Suspect]
     Indication: OSTEOPOROSIS
     Dosage: 20 ug, daily (1/D)
     Route: 058
     Dates: start: 20080201, end: 20080822
  2. DOLOL [Concomitant]
     Indication: BACK PAIN
     Dosage: 50 mg, as needed
     Dates: start: 20080812
  3. CORODIL [Concomitant]
     Indication: HYPERTENSION
  4. CALCIUM [Concomitant]
     Indication: OSTEOPOROSIS
     Dates: start: 20080109
  5. VITAMIN D [Concomitant]
     Indication: OSTEOPOROSIS
     Dates: start: 20080109

REACTIONS (1)
  - Death [Fatal]
